FAERS Safety Report 4947114-5 (Version None)
Quarter: 2006Q1

REPORT INFORMATION
  Report Type: 
  Country: None (occurrence: None)
  Receive Date: 20060314
  Receipt Date: 20060221
  Transmission Date: 20060701
  Serious: Yes (Hospitalization)
  Sender: FDA-Public Use
  Company Number: US200602004343

PATIENT
  Age: 83 Year
  Sex: Female

DRUGS (2)
  1. FORTEO [Suspect]
     Indication: OSTEOPOROSIS
     Dates: start: 20050201
  2. FORTEO [Concomitant]

REACTIONS (5)
  - CONDITION AGGRAVATED [None]
  - EXOSTOSIS [None]
  - NERVE ROOT INJURY [None]
  - NEURALGIA [None]
  - PAIN [None]
